FAERS Safety Report 7083470-2 (Version None)
Quarter: 2010Q4

REPORT INFORMATION
  Report Type: 
  Country: None (occurrence: None)
  Receive Date: 20101104
  Receipt Date: 20101027
  Transmission Date: 20110411
  Serious: Yes (Disabling)
  Sender: FDA-Public Use
  Company Number: B0682743A

PATIENT
  Age: 4 Year
  Sex: Female

DRUGS (1)
  1. OMACOR [Suspect]
     Indication: LIPIDS INCREASED
     Dosage: 1000MG PER DAY
     Route: 048

REACTIONS (2)
  - DISABILITY [None]
  - OFF LABEL USE [None]
